FAERS Safety Report 18509511 (Version 2)
Quarter: 2020Q4

REPORT INFORMATION
  Report Type: Spontaneous
  Country: US (occurrence: US)
  Receive Date: 20201117
  Receipt Date: 20201130
  Transmission Date: 20210114
  Serious: Yes (Hospitalization, Other)
  Sender: FDA-Public Use
  Company Number: US-AUROBINDO-AUR-APL-2020-056016

PATIENT
  Sex: Male

DRUGS (1)
  1. METFORMIN [Suspect]
     Active Substance: METFORMIN HYDROCHLORIDE
     Indication: TYPE 2 DIABETES MELLITUS
     Dosage: UNK
     Route: 065
     Dates: start: 201806

REACTIONS (5)
  - Genital swelling [Unknown]
  - Emotional distress [Unknown]
  - Peritonitis [Unknown]
  - Fournier^s gangrene [Unknown]
  - Anxiety [Unknown]

NARRATIVE: CASE EVENT DATE: 201810
